FAERS Safety Report 9556513 (Version 1)
Quarter: 2013Q3

REPORT INFORMATION
  Report Type: Spontaneous
  Country: US (occurrence: None)
  Receive Date: 20130906
  Receipt Date: 20130906
  Transmission Date: 20140515
  Serious: Yes (Hospitalization)
  Sender: FDA-Public Use
  Company Number: 163-POMAL-13060830

PATIENT
  Age: 89 Year
  Sex: Female
  Weight: 55.79 kg

DRUGS (10)
  1. POMALYST [Suspect]
     Indication: PLASMA CELL MYELOMA
     Dosage: CAPSULE, 4 MG, 21 IN 28 D, PO
     Dates: start: 20130515, end: 20130518
  2. MULTIVITAMINS [Concomitant]
  3. OXYCODONE [Concomitant]
  4. PANTOPRAZOLE [Concomitant]
  5. BENICAR (OLMESARTAN MEDOXOMIL) [Concomitant]
  6. BENADRYL [Concomitant]
  7. LASIX (FUROSEMIDE) [Concomitant]
  8. METOPROLOL [Concomitant]
  9. PROTONIX [Concomitant]
  10. PERCOCET (OXYCOCET) [Concomitant]

REACTIONS (2)
  - Cardiac failure congestive [None]
  - Fluid overload [None]
